FAERS Safety Report 4365524-4 (Version None)
Quarter: 2004Q2

REPORT INFORMATION
  Report Type: 
  Country: None (occurrence: None)
  Receive Date: 20040526
  Receipt Date: 20040513
  Transmission Date: 20050107
  Serious: Yes (Other)
  Sender: FDA-Public Use
  Company Number: FR-GLAXOSMITHKLINE-B0321132B

PATIENT
  Sex: Male
  Weight: 49 kg

DRUGS (1)
  1. SALMETEROL [Suspect]
     Dosage: 50MCG TWICE PER DAY
     Route: 055
     Dates: start: 20010920, end: 20030226

REACTIONS (3)
  - CHRONIC OBSTRUCTIVE AIRWAYS DISEASE EXACERBATED [None]
  - MYCOBACTERIAL INFECTION [None]
  - RESPIRATORY DISORDER [None]
